FAERS Safety Report 5481266-6 (Version None)
Quarter: 2007Q4

REPORT INFORMATION
  Report Type: 
  Country: None (occurrence: None)
  Receive Date: 20071005
  Receipt Date: 20071005
  Transmission Date: 20080405
  Serious: No
  Sender: FDA-Public Use
  Company Number: None

PATIENT
  Sex: Female

DRUGS (2)
  1. KETOROLAC TROMETHAMINE INJ   30MG/ML   ABRAXIS PHARMACEUTICAL [Suspect]
     Indication: PROCEDURAL PAIN
     Dosage: 30MG EVERY 6 HOURS IV
     Route: 042
  2. LACTATED RINGER'S INJECTION USP  1000ML   BAXTER [Suspect]
     Dosage: IV DRIP
     Route: 041

REACTIONS (1)
  - PHARMACEUTICAL PRODUCT COMPLAINT [None]
